FAERS Safety Report 13953127 (Version 6)
Quarter: 2023Q4

REPORT INFORMATION
  Report Type: Spontaneous
  Country: DE (occurrence: DE)
  Receive Date: 20170911
  Receipt Date: 20231122
  Transmission Date: 20240109
  Serious: Yes (Death, Hospitalization, Other)
  Sender: FDA-Public Use
  Company Number: DE-AUROBINDO-AUR-APL-2017-40103

PATIENT
  Age: 46 Year
  Sex: Female
  Weight: 120 kg

DRUGS (11)
  1. HYDROCHLOROTHIAZIDE [Suspect]
     Active Substance: HYDROCHLOROTHIAZIDE
     Indication: Product used for unknown indication
     Dosage: 25 MILLIGRAM, ONCE A DAY
     Route: 048
  2. RISPERIDONE [Suspect]
     Active Substance: RISPERIDONE
     Indication: Schizoaffective disorder
     Dosage: UNK
     Route: 065
  3. BIPERIDEN [Suspect]
     Active Substance: BIPERIDEN
     Indication: Schizoaffective disorder
     Dosage: 4 MILLIGRAM, ONCE A DAY
     Route: 048
  4. ENALAPRIL [Suspect]
     Active Substance: ENALAPRIL
     Indication: Product used for unknown indication
     Dosage: 5 MILLIGRAM, ONCE A DAY
     Route: 048
  5. HALOPERIDOL [Suspect]
     Active Substance: HALOPERIDOL
     Indication: Schizoaffective disorder
     Dosage: UNK
     Route: 065
  6. LITHIUM [Suspect]
     Active Substance: LITHIUM
     Indication: Schizoaffective disorder
     Dosage: UNK
     Route: 065
  7. LEVOMEPROMAZINE [Suspect]
     Active Substance: LEVOMEPROMAZINE
     Indication: Schizoaffective disorder
     Dosage: UNK
     Route: 065
  8. TRIAMTERENE [Suspect]
     Active Substance: TRIAMTERENE
     Indication: Product used for unknown indication
     Dosage: 50 MILLIGRAM, ONCE A DAY
     Route: 048
  9. VALPROIC ACID [Suspect]
     Active Substance: VALPROIC ACID
     Indication: Schizoaffective disorder
     Dosage: UNK
     Route: 065
  10. ZUCLOPENTHIXOL [Suspect]
     Active Substance: ZUCLOPENTHIXOL
     Indication: Schizoaffective disorder
     Dosage: 500 MILLIGRAM, 6 MONTHS(EVERY 2 WEEKS)
     Route: 065
  11. ZUCLOPENTHIXOL [Suspect]
     Active Substance: ZUCLOPENTHIXOL
     Dosage: 500 MILLIGRAM, 6 MONTHS(EVERY 2 WEEKS)
     Route: 065

REACTIONS (21)
  - Cardiac failure [Fatal]
  - Circulatory collapse [Fatal]
  - Ileus paralytic [Fatal]
  - Cardiopulmonary failure [Fatal]
  - Diarrhoea [Fatal]
  - Respiratory failure [Fatal]
  - Disorientation [Fatal]
  - Cardiac arrest [Fatal]
  - Megacolon [Fatal]
  - Abdominal pain upper [Fatal]
  - Hypochloraemia [Fatal]
  - C-reactive protein increased [Fatal]
  - Blood creatine phosphokinase increased [Fatal]
  - Blood lactate dehydrogenase increased [Fatal]
  - Cardio-respiratory arrest [Fatal]
  - Hyponatraemia [Fatal]
  - Intestinal dilatation [Fatal]
  - Hypocalcaemia [Fatal]
  - Fear of death [Not Recovered/Not Resolved]
  - Confusional state [Not Recovered/Not Resolved]
  - Dyspnoea [Unknown]
